FAERS Safety Report 8816445 (Version 2)
Quarter: 2013Q1

REPORT INFORMATION
  Report Type: Spontaneous
  Country: DE (occurrence: None)
  Receive Date: 20120927
  Receipt Date: 20130205
  Transmission Date: 20140127
  Serious: Yes (Hospitalization)
  Sender: FDA-Public Use
  Company Number: ACO_32140_2012

PATIENT
  Age: 41 Year
  Sex: Female

DRUGS (8)
  1. FAMPYRA [Suspect]
     Indication: MULTIPLE SCLEROSIS
     Dates: start: 20111219, end: 2012
  2. TYSABRI [Concomitant]
  3. AMANTADINE [Concomitant]
  4. BACLOFEN [Concomitant]
  5. DESMOPRESSIN (DESMOPRESSIN ACETATE) [Concomitant]
  6. SPASMEX (TROSPIUM CHLORIDE) [Concomitant]
  7. IBUPROFEN (IBUPROFEN SODIUM) [Concomitant]
  8. TRIMINEURIN (TRIMIPRAMINE MALEATE) [Concomitant]

REACTIONS (4)
  - Epilepsy [None]
  - Cognitive disorder [None]
  - Headache [None]
  - Grand mal convulsion [None]
